FAERS Safety Report 18336612 (Version 1)
Quarter: 2020Q4

REPORT INFORMATION
  Report Type: Spontaneous
  Country: US (occurrence: US)
  Receive Date: 20201001
  Receipt Date: 20201001
  Transmission Date: 20210113
  Serious: No
  Sender: FDA-Public Use
  Company Number: US-BIOGEN-2020BI00929274

PATIENT
  Age: 12 Year
  Sex: Female

DRUGS (1)
  1. SPINRAZA [Suspect]
     Active Substance: NUSINERSEN
     Indication: SPINAL MUSCULAR ATROPHY
     Route: 065

REACTIONS (5)
  - Blood cholesterol abnormal [Unknown]
  - Alanine aminotransferase increased [Unknown]
  - Glycosylated haemoglobin abnormal [Unknown]
  - Aspartate aminotransferase increased [Unknown]
  - Blood triglycerides abnormal [Unknown]
